FAERS Safety Report 12850057 (Version 2)
Quarter: 2017Q1

REPORT INFORMATION
  Report Type: Spontaneous
  Country: US (occurrence: US)
  Receive Date: 20161014
  Receipt Date: 20170125
  Transmission Date: 20170428
  Serious: Yes (Other)
  Sender: FDA-Public Use
  Company Number: US-ROCHE-ITM201505IM015460

PATIENT
  Age: 91 Year
  Sex: Male
  Weight: 66.74 kg

DRUGS (12)
  1. ATROVENT [Concomitant]
     Active Substance: IPRATROPIUM BROMIDE
  2. ATENOLOL. [Concomitant]
     Active Substance: ATENOLOL
  3. CLARITIN-D 12 HOUR [Concomitant]
     Active Substance: LORATADINE\PSEUDOEPHEDRINE SULFATE
  4. ESBRIET [Suspect]
     Active Substance: PIRFENIDONE
     Indication: IDIOPATHIC PULMONARY FIBROSIS
     Route: 048
     Dates: start: 201412
  5. ATORVASTATIN [Concomitant]
     Active Substance: ATORVASTATIN
  6. PROPAFENONE. [Concomitant]
     Active Substance: PROPAFENONE
  7. NASONEX [Concomitant]
     Active Substance: MOMETASONE FUROATE
  8. LISINOPRIL. [Concomitant]
     Active Substance: LISINOPRIL
  9. ESBRIET [Suspect]
     Active Substance: PIRFENIDONE
     Route: 048
     Dates: start: 20150506
  10. FLONASE (UNITED STATES) [Concomitant]
  11. SYMBICORT [Concomitant]
     Active Substance: BUDESONIDE\FORMOTEROL FUMARATE DIHYDRATE
  12. ESBRIET [Suspect]
     Active Substance: PIRFENIDONE
     Route: 048
     Dates: start: 20160423

REACTIONS (10)
  - Erythema [Not Recovered/Not Resolved]
  - Asthenia [Not Recovered/Not Resolved]
  - Dyspnoea [Unknown]
  - Decreased appetite [Recovered/Resolved]
  - Decreased appetite [Unknown]
  - Weight decreased [Unknown]
  - Feeling hot [Not Recovered/Not Resolved]
  - Skin irritation [Not Recovered/Not Resolved]
  - Asthenia [Unknown]
  - Oedema peripheral [Unknown]

NARRATIVE: CASE EVENT DATE: 201412
